FAERS Safety Report 9128542 (Version 1)
Quarter: 2013Q1

REPORT INFORMATION
  Report Type: Spontaneous
  Country: US (occurrence: US)
  Receive Date: 20130228
  Receipt Date: 20130228
  Transmission Date: 20140127
  Serious: No
  Sender: FDA-Public Use
  Company Number: US-GLAXOSMITHKLINE-A1004943A

PATIENT
  Age: 44 Year
  Sex: Female
  Weight: 69.1 kg

DRUGS (4)
  1. SUMATRIPTAN SUCCINATE [Suspect]
     Indication: MIGRAINE
     Dosage: 6MG AS DIRECTED
     Route: 058
  2. DEVICE [Suspect]
     Indication: MIGRAINE
     Route: 058
  3. CLONAZEPAM [Concomitant]
     Indication: ANXIETY
  4. UNSPECIFIED MEDICATION [Concomitant]
     Indication: URTICARIA

REACTIONS (4)
  - Needle issue [Recovered/Resolved]
  - Injection site pain [Recovered/Resolved]
  - Injection site erythema [Recovered/Resolved]
  - Product quality issue [Unknown]
